FAERS Safety Report 9148847 (Version 1)
Quarter: 2013Q1

REPORT INFORMATION
  Report Type: Spontaneous
  Country: US (occurrence: None)
  Receive Date: 20130227
  Receipt Date: 20130227
  Transmission Date: 20140127
  Serious: Yes (Hospitalization, Other)
  Sender: FDA-Public Use
  Company Number: None

PATIENT
  Age: 47 Year
  Sex: Female
  Weight: 90.72 kg

DRUGS (1)
  1. OMEPRAZOLE MAGNESIUM [Suspect]
     Indication: GASTROOESOPHAGEAL REFLUX DISEASE
     Dates: start: 20080101, end: 20130225

REACTIONS (6)
  - Clostridium difficile infection [None]
  - Intestinal haemorrhage [None]
  - Pain [None]
  - Pathogen resistance [None]
  - White blood cell count increased [None]
  - Impaired work ability [None]
